FAERS Safety Report 11020590 (Version 3)
Quarter: 2015Q3

REPORT INFORMATION
  Report Type: Spontaneous
  Country: US (occurrence: US)
  Receive Date: 20150413
  Receipt Date: 20150724
  Transmission Date: 20151125
  Serious: No
  Sender: FDA-Public Use
  Company Number: US-ASTRAZENECA-2015SE32254

PATIENT
  Age: 68 Year
  Sex: Female
  Weight: 49.9 kg

DRUGS (5)
  1. MULTIVITAMIN [Concomitant]
     Active Substance: VITAMINS
     Route: 065
  2. ADVAIR HFA [Concomitant]
     Active Substance: FLUTICASONE PROPIONATE\SALMETEROL XINAFOATE
     Dates: end: 2014
  3. NEXIUM [Suspect]
     Active Substance: ESOMEPRAZOLE MAGNESIUM
     Indication: GASTROOESOPHAGEAL REFLUX DISEASE
     Dosage: EVERY MORNING
     Route: 048
  4. SYMBICORT [Suspect]
     Active Substance: BUDESONIDE\FORMOTEROL FUMARATE DIHYDRATE
     Indication: ASTHMA EXERCISE INDUCED
     Dosage: 80/4.5 2 PUFFS, TWO TIMES A DAY
     Route: 055
     Dates: start: 2014
  5. SYMBICORT [Suspect]
     Active Substance: BUDESONIDE\FORMOTEROL FUMARATE DIHYDRATE
     Indication: ASTHMA EXERCISE INDUCED
     Dosage: 80/4.5 2 PUFFS, TWO TIMES A DAY
     Route: 055
     Dates: start: 20150329

REACTIONS (4)
  - Device defective [Unknown]
  - Gastrooesophageal sphincter insufficiency [Unknown]
  - Asthma exercise induced [Unknown]
  - Cough [Not Recovered/Not Resolved]

NARRATIVE: CASE EVENT DATE: 2014
